FAERS Safety Report 6202143-9 (Version None)
Quarter: 2009Q2

REPORT INFORMATION
  Report Type: 
  Country: None (occurrence: None)
  Receive Date: 20090526
  Receipt Date: 20090514
  Transmission Date: 20091009
  Serious: Yes (Hospitalization)
  Sender: FDA-Public Use
  Company Number: US-ALEXION-A200900401

PATIENT
  Sex: Female

DRUGS (2)
  1. SOLIRIS [Suspect]
     Indication: PAROXYSMAL NOCTURNAL HAEMOGLOBINURIA
     Dosage: 600 MG, QW
     Route: 042
     Dates: start: 20090325
  2. SOLIRIS [Suspect]
     Dosage: UNK
     Route: 042

REACTIONS (5)
  - HAEMOGLOBIN DECREASED [None]
  - NECK PAIN [None]
  - PLATELET COUNT DECREASED [None]
  - PYREXIA [None]
  - VIRAL INFECTION [None]
